APPROVED DRUG PRODUCT: CINACALCET HYDROCHLORIDE
Active Ingredient: CINACALCET HYDROCHLORIDE
Strength: EQ 90MG BASE
Dosage Form/Route: TABLET;ORAL
Application: A204377 | Product #003 | TE Code: AB
Applicant: WATSON LABORATORIES INC AN INDIRECT WHOLLY OWNED SUB OF TEVA PHARMACEUTICALS USA INC
Approved: Dec 27, 2018 | RLD: No | RS: No | Type: RX